FAERS Safety Report 6093696-2 (Version None)
Quarter: 2009Q1

REPORT INFORMATION
  Report Type: 
  Country: None (occurrence: None)
  Receive Date: 20090223
  Receipt Date: 20090204
  Transmission Date: 20090719
  Serious: Yes (Hospitalization)
  Sender: FDA-Public Use
  Company Number: 200828861GPV

PATIENT
  Age: 61 Year
  Sex: Female

DRUGS (5)
  1. MABCAMPATH (ALEMTUZUMAB) [Suspect]
     Indication: CHRONIC LYMPHOCYTIC LEUKAEMIA
     Dosage: 30 MG, SUBCUTANEOUS
     Route: 058
     Dates: start: 20080514, end: 20080709
  2. FLUDARA [Suspect]
     Indication: CHRONIC LYMPHOCYTIC LEUKAEMIA
     Dosage: 10 MG, ORAL
     Route: 048
     Dates: start: 20080514, end: 20080709
  3. CYCLOPHOSPHAMIDE [Suspect]
     Indication: CHRONIC LYMPHOCYTIC LEUKAEMIA
     Dosage: 50 MG, ORAL
     Route: 048
     Dates: start: 20080415, end: 20080709
  4. BACTRIM [Concomitant]
  5. VALACYCLOVIR HCL [Concomitant]

REACTIONS (3)
  - BONE MARROW FAILURE [None]
  - FEBRILE NEUTROPENIA [None]
  - HYPOTENSION [None]
